FAERS Safety Report 8055435-5 (Version None)
Quarter: 2011Q4

REPORT INFORMATION
  Report Type: 
  Country: None (occurrence: None)
  Receive Date: 20111213
  Receipt Date: 20110926
  Transmission Date: 20120403
  Serious: Yes (Hospitalization)
  Sender: FDA-Public Use
  Company Number: 2011SP045522

PATIENT
  Age: 57 Year
  Sex: Female

DRUGS (6)
  1. SAPHRIS [Suspect]
     Indication: BIPOLAR DISORDER
     Dosage: 10 MG;QD;SL ; 10 MG;QD;SL
     Route: 060
     Dates: start: 20110801
  2. ATIVAN [Concomitant]
  3. ARTANE [Concomitant]
  4. DILANTIN [Concomitant]
  5. TRILEPTAL [Concomitant]
  6. HYDROCHLOROTHIAZIDE [Concomitant]

REACTIONS (5)
  - ENURESIS [None]
  - SLEEP TALKING [None]
  - INAPPROPRIATE SCHEDULE OF DRUG ADMINISTRATION [None]
  - CONVULSION [None]
  - FALL [None]
